FAERS Safety Report 11913994 (Version 1)
Quarter: 2016Q1

REPORT INFORMATION
  Report Type: Report from Study
  Country: BE (occurrence: BE)
  Receive Date: 20160113
  Receipt Date: 20160113
  Transmission Date: 20160526
  Serious: Yes (Hospitalization)
  Sender: FDA-Public Use
  Company Number: BE-BIOGEN-2016BI00170517

PATIENT
  Age: 33 Year
  Sex: Male

DRUGS (1)
  1. PLEGRIDY [Suspect]
     Active Substance: PEGINTERFERON BETA-1A
     Indication: MULTIPLE SCLEROSIS
     Route: 058
     Dates: start: 20160106

REACTIONS (5)
  - Fall [Recovered/Resolved]
  - Vomiting [Not Recovered/Not Resolved]
  - Muscular weakness [Unknown]
  - Incontinence [Unknown]
  - Malaise [Unknown]

NARRATIVE: CASE EVENT DATE: 20160106
